FAERS Safety Report 9492397 (Version 2)
Quarter: 2013Q3

REPORT INFORMATION
  Report Type: Spontaneous
  Country: US (occurrence: US)
  Receive Date: 20130830
  Receipt Date: 20130830
  Transmission Date: 20140515
  Serious: Yes (Hospitalization, Other)
  Sender: FDA-Public Use
  Company Number: US-009507513-2009SP040442

PATIENT
  Sex: Female
  Weight: 95.26 kg

DRUGS (2)
  1. NUVARING [Suspect]
     Indication: CONTRACEPTION
     Dates: start: 200802, end: 200805
  2. IRON (UNSPECIFIED) [Concomitant]
     Dates: start: 20080401

REACTIONS (5)
  - Pulmonary embolism [Unknown]
  - Deep vein thrombosis [Not Recovered/Not Resolved]
  - Musculoskeletal pain [Unknown]
  - Deep vein thrombosis [Not Recovered/Not Resolved]
  - Herpes zoster [Recovering/Resolving]
